FAERS Safety Report 10259328 (Version 2)
Quarter: 2014Q2

REPORT INFORMATION
  Report Type: Spontaneous
  Country: US (occurrence: US)
  Receive Date: 20140625
  Receipt Date: 20140625
  Transmission Date: 20141212
  Serious: No
  Sender: FDA-Public Use
  Company Number: US-ASTELLAS-2014US001966

PATIENT
  Age: 71 Year
  Sex: Male

DRUGS (3)
  1. VESICARE [Suspect]
     Indication: HYPERTONIC BLADDER
     Route: 048
     Dates: start: 201401, end: 201401
  2. VESICARE [Suspect]
     Indication: PROSTATE INFECTION
     Route: 065
     Dates: start: 20140403, end: 201404
  3. PRAVASTATIN [Concomitant]
     Indication: PRODUCT USED FOR UNKNOWN INDICATION
     Route: 065

REACTIONS (4)
  - Dysstasia [Unknown]
  - Pain [Recovering/Resolving]
  - Device failure [Recovering/Resolving]
  - Drug ineffective [Unknown]
